FAERS Safety Report 12753272 (Version 1)
Quarter: 2020Q3

REPORT INFORMATION
  Report Type: Report from Study
  Country: DE (occurrence: DE)
  Receive Date: 20160916
  Receipt Date: 20160916
  Transmission Date: 20201105
  Serious: Yes (Other)
  Sender: FDA-Public Use
  Company Number: DE-ROCHE-1596813

PATIENT
  Age: 53 Year
  Sex: Male

DRUGS (3)
  1. INNOHEP [Concomitant]
     Active Substance: TINZAPARIN SODIUM
     Route: 065
  2. ALECTINIB. [Suspect]
     Active Substance: ALECTINIB
     Indication: LUNG NEOPLASM MALIGNANT
     Dosage: LAST DOSE RECEIVED 16/JUN/2015 BEFORE SAE. DRUG INTERRUPTED BETWEEN 17/JUN/2015 AND 30/JUN/2015 DUE
     Route: 065
     Dates: start: 20150603, end: 20150617
  3. ALECTINIB. [Suspect]
     Active Substance: ALECTINIB
     Dosage: DOSE OF 3 TWICE DAILY
     Route: 065
     Dates: start: 20150702

REACTIONS (2)
  - Blood creatine phosphokinase increased [Recovered/Resolved]
  - Rhabdomyolysis [Recovered/Resolved]

NARRATIVE: CASE EVENT DATE: 20150617
